FAERS Safety Report 12612773 (Version 1)
Quarter: 2016Q3

REPORT INFORMATION
  Report Type: Spontaneous
  Country: US (occurrence: US)
  Receive Date: 20160801
  Receipt Date: 20160801
  Transmission Date: 20161109
  Serious: Yes (Other)
  Sender: FDA-Public Use
  Company Number: US-ELI_LILLY_AND_COMPANY-US201607009883

PATIENT
  Age: 56 Year
  Sex: Female

DRUGS (10)
  1. VITAMIN D3 [Concomitant]
     Active Substance: CHOLECALCIFEROL
     Dosage: 1000 IU, QD
  2. PROGRAF [Concomitant]
     Active Substance: TACROLIMUS\TACROLIMUS ANHYDROUS
  3. CELLCEPT [Concomitant]
     Active Substance: MYCOPHENOLATE MOFETIL\MYCOPHENOLATE MOFETIL HYDROCHLORIDE
  4. PREDNISONE. [Concomitant]
     Active Substance: PREDNISONE
  5. ASPIRIN                            /00002701/ [Concomitant]
     Active Substance: ASPIRIN
  6. FORTEO [Suspect]
     Active Substance: TERIPARATIDE
     Indication: OSTEOPOROSIS
     Dosage: UNK, QD
     Route: 065
     Dates: start: 20160517
  7. ESTROVEN [Concomitant]
     Active Substance: DIETARY SUPPLEMENT
  8. LYRICA [Concomitant]
     Active Substance: PREGABALIN
  9. CALCIUM + VITAMIN D                /01483701/ [Concomitant]
     Active Substance: CALCIUM\VITAMIN D
  10. MULTIVITAMIN                       /00097801/ [Concomitant]
     Active Substance: VITAMINS

REACTIONS (8)
  - Panic attack [Unknown]
  - Muscle spasms [Recovering/Resolving]
  - Dyspnoea [Unknown]
  - Hypopnoea [Unknown]
  - Lung disorder [Unknown]
  - Fall [Unknown]
  - Muscle spasms [Recovering/Resolving]
  - Hypertension [Unknown]

NARRATIVE: CASE EVENT DATE: 20160628
